FAERS Safety Report 13840307 (Version 2)
Quarter: 2019Q1

REPORT INFORMATION
  Report Type: Spontaneous
  Country: US (occurrence: US)
  Receive Date: 20170807
  Receipt Date: 20190208
  Transmission Date: 20190417
  Serious: No
  Sender: FDA-Public Use
  Company Number: US-AEGERION PHARMACEUTICAL, INC-AEGR003036

PATIENT
  Age: 2 Year
  Sex: Female

DRUGS (1)
  1. MYALEPT [Suspect]
     Active Substance: METRELEPTIN
     Indication: CONGENITAL GENERALISED LIPODYSTROPHY
     Dosage: 0.5 MG, QD
     Route: 058

REACTIONS (1)
  - Blood triglycerides increased [Unknown]

NARRATIVE: CASE EVENT DATE: 20170127
